FAERS Safety Report 6887984-7 (Version None)
Quarter: 2010Q3

REPORT INFORMATION
  Report Type: 
  Country: None (occurrence: None)
  Receive Date: 20100730
  Receipt Date: 20100720
  Transmission Date: 20110219
  Serious: Yes (Other)
  Sender: FDA-Public Use
  Company Number: A0867547A

PATIENT
  Age: 57 Year
  Sex: Female

DRUGS (1)
  1. PROMACTA [Suspect]
     Indication: IDIOPATHIC THROMBOCYTOPENIC PURPURA
     Dosage: 50MG PER DAY
     Route: 048
     Dates: start: 20100129, end: 20100207

REACTIONS (4)
  - ACUTE MYELOID LEUKAEMIA [None]
  - ADENOMA BENIGN [None]
  - KARYOTYPE ANALYSIS ABNORMAL [None]
  - PANCYTOPENIA [None]
